FAERS Safety Report 9723089 (Version 1)
Quarter: 2013Q4

REPORT INFORMATION
  Report Type: Spontaneous
  Country: US (occurrence: None)
  Receive Date: 20131127
  Receipt Date: 20131127
  Transmission Date: 20140711
  Serious: No
  Sender: FDA-Public Use
  Company Number: None

PATIENT
  Age: 58 None
  Sex: Female
  Weight: 56.7 kg

DRUGS (11)
  1. BUPROPION HYDROCHLORIDE (SR) [Suspect]
     Indication: DEPRESSION
     Route: 048
     Dates: start: 201307, end: 201310
  2. BUPROPION HCL [Concomitant]
  3. GENERIC ADDERALL [Concomitant]
  4. PRAMIPEXOLE [Concomitant]
  5. VITAMIN C [Concomitant]
  6. VITAMIN B1 [Concomitant]
  7. VITAMIN B 12 [Concomitant]
  8. NIACIN [Concomitant]
  9. COQ-10 [Concomitant]
  10. PSYLIM FIBER TABS [Concomitant]
  11. VITAMIN D-3 [Concomitant]

REACTIONS (5)
  - Migraine [None]
  - Product odour abnormal [None]
  - Product size issue [None]
  - Product shape issue [None]
  - Product quality issue [None]
